FAERS Safety Report 24686458 (Version 3)
Quarter: 2024Q4

REPORT INFORMATION
  Report Type: Report from Study
  Country: US (occurrence: US)
  Receive Date: 20241202
  Receipt Date: 20241219
  Transmission Date: 20250114
  Serious: No
  Sender: AGIOS PHARMACEUTICALS
  Company Number: US-AGIOS-2411US03964

PATIENT
  Sex: Male
  Weight: 79 kg

DRUGS (1)
  1. MITAPIVAT [Suspect]
     Active Substance: MITAPIVAT
     Indication: Pyruvate kinase deficiency anaemia
     Dosage: 50 MILLIGRAM, BID
     Route: 048
     Dates: start: 20240731

REACTIONS (8)
  - Headache [Unknown]
  - Migraine [Unknown]
  - Blood pressure increased [Unknown]
  - Insomnia [Unknown]
  - Fatigue [Unknown]
  - Anxiety [Unknown]
  - Product dose omission issue [Unknown]
  - COVID-19 [Unknown]
